FAERS Safety Report 4513266-4 (Version None)
Quarter: 2004Q4

REPORT INFORMATION
  Report Type: 
  Country: None (occurrence: None)
  Receive Date: 20041130
  Receipt Date: 20041125
  Transmission Date: 20050328
  Serious: Yes (Other)
  Sender: FDA-Public Use
  Company Number: CH-ROCHE-387092

PATIENT
  Age: 28 Year
  Sex: Male

DRUGS (2)
  1. PEGASYS [Suspect]
     Route: 058
     Dates: start: 20040215
  2. COPEGUS [Concomitant]
     Route: 048
     Dates: start: 20040215

REACTIONS (4)
  - AGGRESSION [None]
  - IMPULSIVE BEHAVIOUR [None]
  - PERSONALITY CHANGE [None]
  - PERSONALITY DISORDER [None]
